FAERS Safety Report 16726665 (Version 4)
Quarter: 2019Q4

REPORT INFORMATION
  Report Type: Spontaneous
  Country: JP (occurrence: JP)
  Receive Date: 20190821
  Receipt Date: 20191003
  Transmission Date: 20200122
  Serious: Yes (Death, Other)
  Sender: FDA-Public Use
  Company Number: JP-UCBSA-2019034701

PATIENT
  Age: 92 Year
  Sex: Female
  Weight: 38.1 kg

DRUGS (13)
  1. E KEPPRA [Concomitant]
     Active Substance: LEVETIRACETAM
     Indication: EPILEPSY
     Dosage: UNK
     Dates: start: 20190731, end: 20190731
  2. E KEPPRA [Concomitant]
     Active Substance: LEVETIRACETAM
     Dosage: 500 MILLIGRAM, 2X/DAY (BID)
     Route: 048
     Dates: start: 20190801, end: 20190802
  3. AMLODIPINE [Concomitant]
     Active Substance: AMLODIPINE BESYLATE
     Route: 048
     Dates: start: 20190731
  4. CEFOZOPRAN HYDROCHLORIDE [Concomitant]
     Active Substance: CEFOZOPRAN HYDROCHLORIDE
     Route: 042
     Dates: start: 20190801
  5. VIMPAT [Suspect]
     Active Substance: LACOSAMIDE
     Indication: EPILEPSY
     Dosage: 50 MILLIGRAM
     Route: 041
     Dates: start: 20190731, end: 20190731
  6. ADONA [CARBAZOCHROME SODIUM SULFONATE] [Concomitant]
     Active Substance: CARBAZOCHROME SODIUM SULFONATE
     Route: 042
     Dates: start: 20190730, end: 20190801
  7. E KEPPRA [Concomitant]
     Active Substance: LEVETIRACETAM
     Indication: EPILEPSY
     Dosage: 500MG DAILY
     Route: 042
     Dates: start: 20190731, end: 20190731
  8. TRANSAMIN [Concomitant]
     Active Substance: TRANEXAMIC ACID
     Route: 042
     Dates: start: 20190730, end: 20190801
  9. MAGMITT [Concomitant]
     Active Substance: MAGNESIUM OXIDE
     Route: 048
     Dates: start: 20190731
  10. ADRENALINE [EPINEPHRINE] [Concomitant]
     Active Substance: EPINEPHRINE
  11. VIMPAT [Suspect]
     Active Substance: LACOSAMIDE
     Indication: EPILEPSY
     Dosage: 50 MILLIGRAM, 2X/DAY (BID)
     Route: 048
     Dates: start: 20190801, end: 20190802
  12. NEXIUM I.V. [Concomitant]
     Active Substance: ESOMEPRAZOLE SODIUM
     Route: 048
     Dates: start: 20190731
  13. CERCINE [Concomitant]
     Active Substance: DIAZEPAM
     Route: 042
     Dates: start: 20190731, end: 20190731

REACTIONS (4)
  - Cardiac failure [Fatal]
  - Atrioventricular block [Unknown]
  - Bradycardia [Fatal]
  - Respiratory arrest [Fatal]

NARRATIVE: CASE EVENT DATE: 20190802
